FAERS Safety Report 12420074 (Version 1)
Quarter: 2016Q2

REPORT INFORMATION
  Report Type: Spontaneous
  Country: US (occurrence: US)
  Receive Date: 20160531
  Receipt Date: 20160531
  Transmission Date: 20160815
  Serious: No
  Sender: FDA-Public Use
  Company Number: US-TARO-2016TAR00133

PATIENT
  Sex: Male

DRUGS (1)
  1. BETAMETHASONE DIPROPIONATE CREAM USP 0.05% [Suspect]
     Active Substance: BETAMETHASONE DIPROPIONATE
     Dosage: UNK
     Dates: start: 2012

REACTIONS (6)
  - Skin fissures [Unknown]
  - Pruritus [Unknown]
  - Haemorrhage [Unknown]
  - Urticaria [Unknown]
  - Erythema [Unknown]
  - Intentional overdose [Unknown]
